FAERS Safety Report 22660487 (Version 1)
Quarter: 2023Q2

REPORT INFORMATION
  Report Type: Spontaneous
  Country: US (occurrence: US)
  Receive Date: 20230630
  Receipt Date: 20230630
  Transmission Date: 20230721
  Serious: Yes (Hospitalization)
  Sender: FDA-Public Use
  Company Number: US-BRISTOL-MYERS SQUIBB COMPANY-2023-091765

PATIENT
  Age: 50 Year
  Sex: Female

DRUGS (2)
  1. THALOMID [Suspect]
     Active Substance: THALIDOMIDE
     Indication: Plasma cell myeloma
     Dosage: DAILY
     Route: 048
     Dates: start: 202305, end: 20230531
  2. THALOMID [Suspect]
     Active Substance: THALIDOMIDE
     Dosage: DAILY
     Route: 048
     Dates: start: 20230609, end: 20230611

REACTIONS (2)
  - Mouth haemorrhage [Unknown]
  - Palpitations [Unknown]
